FAERS Safety Report 6241452-4 (Version None)
Quarter: 2009Q2

REPORT INFORMATION
  Report Type: 
  Country: None (occurrence: None)
  Receive Date: 20090623
  Receipt Date: 20030616
  Transmission Date: 20091009
  Serious: Yes (Hospitalization, Disabling)
  Sender: FDA-Public Use
  Company Number: BR-ROCHE-340137

PATIENT
  Sex: Female
  Weight: 57 kg

DRUGS (44)
  1. DACLIZUMAB [Suspect]
     Dosage: BASELINE VISIT.
     Route: 042
     Dates: start: 20030502
  2. DACLIZUMAB [Suspect]
     Dosage: ROUTE AND FORMULATION PER PROTOCOL.
     Route: 042
     Dates: start: 20030519, end: 20030626
  3. MYCOPHENOLATE MOFETIL [Suspect]
     Route: 048
     Dates: start: 20030502, end: 20030609
  4. MYCOPHENOLATE MOFETIL [Suspect]
     Route: 048
     Dates: start: 20030610, end: 20030614
  5. MYCOPHENOLATE MOFETIL [Suspect]
     Route: 048
     Dates: start: 20030615, end: 20030625
  6. MYCOPHENOLATE MOFETIL [Suspect]
     Route: 048
     Dates: start: 20030626, end: 20030703
  7. MYCOPHENOLATE MOFETIL [Suspect]
     Route: 048
     Dates: start: 20030704, end: 20030708
  8. MYCOPHENOLATE MOFETIL [Suspect]
     Route: 048
     Dates: start: 20030709, end: 20030717
  9. MYCOPHENOLATE MOFETIL [Suspect]
     Route: 048
     Dates: start: 20030718, end: 20031030
  10. MYCOPHENOLATE MOFETIL [Suspect]
     Dosage: FORMULATION REPORTED AS: DRAG.
     Route: 048
     Dates: start: 20031031, end: 20040203
  11. MYCOPHENOLATE MOFETIL [Suspect]
     Dosage: FORMULATION REPORTED AS: DRAG.
     Route: 048
     Dates: start: 20040204, end: 20040207
  12. TACROLIMUS [Suspect]
     Route: 048
     Dates: start: 20030512
  13. TACROLIMUS [Suspect]
     Route: 048
     Dates: start: 20030602, end: 20030609
  14. TACROLIMUS [Suspect]
     Route: 048
     Dates: start: 20030610
  15. TACROLIMUS [Suspect]
     Route: 048
     Dates: start: 20030620, end: 20030702
  16. TACROLIMUS [Suspect]
     Route: 048
     Dates: start: 20030703, end: 20030708
  17. TACROLIMUS [Suspect]
     Route: 048
     Dates: start: 20030709, end: 20031111
  18. TACROLIMUS [Suspect]
     Route: 048
     Dates: start: 20031112, end: 20040413
  19. TACROLIMUS [Suspect]
     Route: 048
     Dates: start: 20040414, end: 20040513
  20. TACROLIMUS [Suspect]
     Route: 048
     Dates: start: 20040514
  21. SIROLIMUS [Suspect]
     Dosage: FORMULATION:DRAG.
     Route: 048
     Dates: start: 20040416
  22. PREDNISONE [Suspect]
     Dosage: FORMULATION: DRAG
     Route: 048
     Dates: start: 20030506, end: 20030518
  23. PREDNISONE [Suspect]
     Route: 048
     Dates: start: 20030519, end: 20030524
  24. PREDNISONE [Suspect]
     Route: 048
     Dates: start: 20030525, end: 20030601
  25. PREDNISONE [Suspect]
     Route: 048
     Dates: start: 20030602, end: 20030609
  26. PREDNISONE [Suspect]
     Route: 048
     Dates: start: 20030610, end: 20030617
  27. PREDNISONE [Suspect]
     Route: 048
     Dates: start: 20030618, end: 20030703
  28. PREDNISONE [Suspect]
     Route: 048
     Dates: start: 20030704, end: 20030710
  29. PREDNISONE [Suspect]
     Route: 048
     Dates: start: 20030711, end: 20030819
  30. PREDNISONE [Suspect]
     Route: 048
     Dates: start: 20030820, end: 20040108
  31. PREDNISONE [Suspect]
     Route: 048
     Dates: start: 20040109
  32. METHYLPREDNISOLONE [Suspect]
     Route: 042
     Dates: start: 20030503, end: 20030506
  33. METHYLPREDNISOLONE [Suspect]
     Dosage: DRUG NAME REPORTED AS: METHYPREDNISOLONE.
     Route: 042
     Dates: start: 20030629, end: 20030703
  34. RANITIDINE [Concomitant]
     Route: 048
     Dates: start: 20030502, end: 20040109
  35. ACYCLOVIR [Concomitant]
     Route: 042
     Dates: start: 20030610, end: 20030821
  36. ACYCLOVIR [Concomitant]
     Route: 042
     Dates: start: 20030822, end: 20030827
  37. ACYCLOVIR [Concomitant]
     Dosage: FORMULATION: DRAG.
     Route: 048
     Dates: start: 20030827
  38. AMOXICILLIN AND CLAVULANATE POTASSIUM [Concomitant]
     Dosage: DRUG NAME REPORTED AS: AMOXICILINA-CLAVULANATO.
     Route: 048
     Dates: start: 20031031, end: 20031110
  39. AZITHROMYCIN [Concomitant]
     Dosage: FORMULATION: DRAG.
     Route: 048
     Dates: start: 20031029, end: 20031101
  40. CETOCONAZOL [Concomitant]
     Dosage: FORMULATION: DRAG.
     Route: 048
     Dates: start: 20040204
  41. CIPROFLOXACIN [Concomitant]
     Route: 048
     Dates: start: 20030627, end: 20030704
  42. CIPROFLOXACIN [Concomitant]
     Dosage: FORMULATION: DRAG.
     Route: 048
     Dates: start: 20030725, end: 20030730
  43. GANCICLOVIR [Concomitant]
     Route: 042
     Dates: start: 20031005, end: 20031028
  44. METRONIDAZOLE [Concomitant]
     Dosage: DRUG NAME: METRONIDAZOL FORMULATION: DRAG.
     Route: 048
     Dates: start: 20030725, end: 20030730

REACTIONS (5)
  - CHRONIC ALLOGRAFT NEPHROPATHY [None]
  - DIARRHOEA [None]
  - HERPES SIMPLEX [None]
  - HERPES ZOSTER [None]
  - VOMITING [None]
